FAERS Safety Report 4853947-6 (Version None)
Quarter: 2005Q4

REPORT INFORMATION
  Report Type: 
  Country: None (occurrence: None)
  Receive Date: 20051214
  Receipt Date: 20051005
  Transmission Date: 20060501
  Serious: Yes (Hospitalization)
  Sender: FDA-Public Use
  Company Number: US-MERCK-0510USA04648

PATIENT
  Age: 49 Year
  Sex: Female
  Weight: 75 kg

DRUGS (12)
  1. VIOXX [Suspect]
     Indication: ARTHRITIS
     Route: 048
     Dates: start: 19990101, end: 20041001
  2. OXYCONTIN [Concomitant]
     Route: 065
  3. LASIX [Concomitant]
     Route: 065
  4. MICRO-K [Concomitant]
     Route: 065
  5. DOCUSATE SODIUM [Concomitant]
     Route: 065
  6. PREVACID [Concomitant]
     Route: 065
  7. LIDODERM [Concomitant]
     Route: 065
  8. OS-CAL [Concomitant]
     Route: 065
  9. LISINOPRIL [Concomitant]
     Route: 065
  10. HYDRALAZINE [Concomitant]
     Route: 065
  11. VITAMINS (UNSPECIFIED) [Concomitant]
     Route: 065
  12. NORTRIPTYLINE [Concomitant]
     Route: 065

REACTIONS (12)
  - ANAEMIA POSTOPERATIVE [None]
  - CARDIOVASCULAR DISORDER [None]
  - CAROTID ARTERY OCCLUSION [None]
  - CEREBRAL INFARCTION [None]
  - CEREBROVASCULAR ACCIDENT [None]
  - DYSARTHRIA [None]
  - EPISTAXIS [None]
  - FACIAL PARESIS [None]
  - JOINT INJURY [None]
  - NEPHROLITHIASIS [None]
  - OSTEOARTHRITIS [None]
  - VARICOSE VEIN [None]
